FAERS Safety Report 14990059 (Version 1)
Quarter: 2018Q2

REPORT INFORMATION
  Report Type: Spontaneous
  Country: US (occurrence: US)
  Receive Date: 20180520
  Receipt Date: 20180520
  Transmission Date: 20180711
  Serious: Yes (Disabling)
  Sender: FDA-Public Use
  Company Number: None

PATIENT
  Age: 36 Year
  Sex: Female
  Weight: 88.65 kg

DRUGS (2)
  1. ZOLOFT [Concomitant]
     Active Substance: SERTRALINE HYDROCHLORIDE
  2. ZYRTEC [Suspect]
     Active Substance: CETIRIZINE HYDROCHLORIDE
     Indication: SINUSITIS
     Route: 048
     Dates: start: 20170126, end: 20180414

REACTIONS (10)
  - Inflammation [None]
  - Scratch [None]
  - Hormone level abnormal [None]
  - Weight increased [None]
  - Pruritus generalised [None]
  - Somnolence [None]
  - Uterine leiomyoma [None]
  - Fatigue [None]
  - Drug dose omission [None]
  - Skin haemorrhage [None]

NARRATIVE: CASE EVENT DATE: 20180407
